FAERS Safety Report 21926365 (Version 1)
Quarter: 2023Q1

REPORT INFORMATION
  Report Type: Spontaneous
  Country: CA (occurrence: CA)
  Receive Date: 20230130
  Receipt Date: 20230130
  Transmission Date: 20230417
  Serious: Yes (Other)
  Sender: FDA-Public Use
  Company Number: CA-PFIZER INC-202200451482

PATIENT
  Age: 40 Year
  Sex: Female

DRUGS (6)
  1. CABERGOLINE [Suspect]
     Active Substance: CABERGOLINE
     Indication: Acromegaly
     Dosage: 1 DF
     Route: 065
  2. CABERGOLINE [Suspect]
     Active Substance: CABERGOLINE
     Dosage: 1 DF
     Route: 065
  3. IRON [Concomitant]
     Active Substance: IRON
     Dosage: 1 DF
     Route: 065
  4. SOMAVERT [Concomitant]
     Active Substance: PEGVISOMANT
     Indication: Acromegaly
     Dosage: 10 MG, 1X/DAY
     Route: 058
     Dates: start: 20200630
  5. SOMAVERT [Concomitant]
     Active Substance: PEGVISOMANT
     Dosage: 20 MG, 1X/DAY
     Route: 058
  6. VITAMIN D NOS [Concomitant]
     Active Substance: VITAMIN D NOS
     Dosage: 1 DF
     Route: 065

REACTIONS (4)
  - Cholelithiasis [Unknown]
  - Bradycardia [Unknown]
  - Off label use [Unknown]
  - Drug ineffective for unapproved indication [Unknown]
